FAERS Safety Report 15290451 (Version 2)
Quarter: 2020Q2

REPORT INFORMATION
  Report Type: Spontaneous
  Country: US (occurrence: US)
  Receive Date: 20180817
  Receipt Date: 20200521
  Transmission Date: 20200713
  Serious: Yes (Hospitalization, Other)
  Sender: FDA-Public Use
  Company Number: US-009507513-1808USA007415

PATIENT
  Sex: Male
  Weight: 104.31 kg

DRUGS (2)
  1. VICTOZA [Suspect]
     Active Substance: LIRAGLUTIDE
     Indication: PRODUCT USED FOR UNKNOWN INDICATION
     Dosage: 18MG/3ML 0.6/1.2/ OR 1.7
     Route: 065
     Dates: start: 20151210, end: 201602
  2. JANUVIA [Suspect]
     Active Substance: SITAGLIPTIN PHOSPHATE
     Indication: PRODUCT USED FOR UNKNOWN INDICATION
     Dosage: 100 MILLIGRAM, QD
     Route: 048
     Dates: start: 20090415, end: 201509

REACTIONS (20)
  - Inguinal hernia [Unknown]
  - Vasectomy [Unknown]
  - Abdominal pain upper [Recovered/Resolved]
  - Proteinuria [Unknown]
  - Neuropathy peripheral [Not Recovered/Not Resolved]
  - Back pain [Unknown]
  - Depression [Unknown]
  - Constipation [Unknown]
  - Hypercholesterolaemia [Recovered/Resolved]
  - Pulmonary mass [Unknown]
  - Essential hypertension [Not Recovered/Not Resolved]
  - Hyperlipidaemia [Recovered/Resolved]
  - Lumbar radiculopathy [Unknown]
  - Diabetes mellitus inadequate control [Unknown]
  - Abnormal loss of weight [Recovered/Resolved]
  - Pancreatic carcinoma [Recovered/Resolved]
  - Pancreatitis [Recovered/Resolved]
  - Dermal cyst [Unknown]
  - Osteoarthritis [Unknown]
  - Nausea [Unknown]

NARRATIVE: CASE EVENT DATE: 2016
